FAERS Safety Report 8012814-X (Version None)
Quarter: 2011Q4

REPORT INFORMATION
  Report Type: 
  Country: None (occurrence: None)
  Receive Date: 20111229
  Receipt Date: 20111226
  Transmission Date: 20120403
  Serious: Yes (Death)
  Sender: FDA-Public Use
  Company Number: JP-BRISTOL-MYERS SQUIBB COMPANY-16114530

PATIENT
  Age: 55 Year
  Sex: Male
  Weight: 65 kg

DRUGS (5)
  1. IDAMYCIN [Concomitant]
     Indication: CHRONIC MYELOID LEUKAEMIA
     Route: 042
     Dates: start: 20110826, end: 20110828
  2. MORPHINE [Concomitant]
     Route: 042
     Dates: start: 20110921, end: 20110927
  3. METHYLPREDNISOLONE SODIUM SUCCINATE [Concomitant]
     Route: 042
     Dates: start: 20110922, end: 20110926
  4. SPRYCEL [Suspect]
     Indication: CHRONIC MYELOID LEUKAEMIA
     Dosage: 50 MG:02AUG11.100MG: 25AUG11-17SEP11.
     Route: 048
     Dates: start: 20110712, end: 20110917
  5. CYTARABINE [Concomitant]
     Indication: CHRONIC MYELOID LEUKAEMIA
     Route: 042
     Dates: start: 20110826, end: 20110901

REACTIONS (2)
  - RESPIRATORY FAILURE [None]
  - PLEURAL HAEMORRHAGE [None]
